FAERS Safety Report 5155672-3 (Version None)
Quarter: 2006Q4

REPORT INFORMATION
  Report Type: 
  Country: None (occurrence: None)
  Receive Date: 20061121
  Receipt Date: 20061109
  Transmission Date: 20070319
  Serious: Yes (Death, Hospitalization)
  Sender: FDA-Public Use
  Company Number: AE-MERCK-0611USA05179

PATIENT
  Age: 47 Year
  Sex: Male

DRUGS (4)
  1. CANCIDAS [Suspect]
     Indication: SEPTIC SHOCK
     Route: 042
  2. CANCIDAS [Suspect]
     Route: 042
  3. AMPHOTERICIN B [Suspect]
     Indication: SEPTIC SHOCK
     Route: 042
  4. ANTINEOPLASTIC (UNSPECIFIED) [Concomitant]
     Indication: ACUTE MYELOID LEUKAEMIA
     Route: 065

REACTIONS (5)
  - BLOOD POTASSIUM INCREASED [None]
  - CANDIDIASIS [None]
  - DRUG INEFFECTIVE [None]
  - METASTASES TO SKIN [None]
  - MULTI-ORGAN FAILURE [None]
